FAERS Safety Report 18273902 (Version 1)
Quarter: 2020Q3

REPORT INFORMATION
  Report Type: Spontaneous
  Country: FR (occurrence: FR)
  Receive Date: 20200916
  Receipt Date: 20200916
  Transmission Date: 20201103
  Serious: Yes (Hospitalization)
  Sender: FDA-Public Use
  Company Number: FR-ROCHE-2677827

PATIENT
  Age: 3 Year
  Sex: Male
  Weight: 16 kg

DRUGS (3)
  1. STILNOX [Suspect]
     Active Substance: ZOLPIDEM TARTRATE
     Indication: ACCIDENTAL EXPOSURE TO PRODUCT
     Route: 048
     Dates: start: 20200802, end: 20200802
  2. VALIUM [Suspect]
     Active Substance: DIAZEPAM
     Indication: ACCIDENTAL EXPOSURE TO PRODUCT
     Route: 048
     Dates: start: 20200802, end: 20200802
  3. LORMETAZEPAM [Suspect]
     Active Substance: LORMETAZEPAM
     Indication: ACCIDENTAL EXPOSURE TO PRODUCT
     Route: 048
     Dates: start: 20200802, end: 20200802

REACTIONS (2)
  - Balance disorder [Recovered/Resolved]
  - Accidental exposure to product [Unknown]

NARRATIVE: CASE EVENT DATE: 20200802
